FAERS Safety Report 7705834-3 (Version None)
Quarter: 2011Q3

REPORT INFORMATION
  Report Type: 
  Country: None (occurrence: None)
  Receive Date: 20110824
  Receipt Date: 20110812
  Transmission Date: 20111222
  Serious: Yes (Hospitalization)
  Sender: FDA-Public Use
  Company Number: ES-ELI_LILLY_AND_COMPANY-ES201108004025

PATIENT
  Age: 76 Year
  Sex: Male

DRUGS (6)
  1. CLOPIDOGREL [Concomitant]
     Indication: THROMBOSIS PROPHYLAXIS
     Dosage: 75 MG, QD
     Route: 048
     Dates: start: 20090101, end: 20110509
  2. DULOXETINE HYDROCHLORIDE [Suspect]
     Indication: DEPRESSION
     Dosage: 90 MG, QD
     Route: 048
     Dates: start: 20110201, end: 20110512
  3. CAPTOPRIL [Concomitant]
     Indication: HYPERTENSION
     Dosage: UNK
     Dates: start: 20090101
  4. OMNIC OCAS [Concomitant]
     Indication: BENIGN PROSTATIC HYPERPLASIA
     Dosage: UNK
     Dates: start: 20090101
  5. DAXAS [Concomitant]
     Indication: CHRONIC OBSTRUCTIVE PULMONARY DISEASE
     Dosage: UNK UG, UNK
     Dates: start: 20110401
  6. NEURONTIN [Concomitant]
     Indication: NEURALGIA
     Dosage: UNK
     Dates: start: 20090101

REACTIONS (3)
  - FAECES DISCOLOURED [None]
  - DRUG INTERACTION [None]
  - ANAEMIA [None]
